FAERS Safety Report 20613363 (Version 11)
Quarter: 2022Q4

REPORT INFORMATION
  Report Type: Spontaneous
  Country: GB (occurrence: GB)
  Receive Date: 20220319
  Receipt Date: 20221024
  Transmission Date: 20230113
  Serious: Yes (Hospitalization)
  Sender: FDA-Public Use
  Company Number: GB-AMGEN-GBRSP2021111577

PATIENT
  Age: 46 Year
  Sex: Female

DRUGS (79)
  1. TRASTUZUMAB [Suspect]
     Active Substance: TRASTUZUMAB
     Indication: Breast cancer metastatic
     Dosage: 600 MILLIGRAM, Q3WK
     Route: 041
     Dates: start: 20150420
  2. TRASTUZUMAB [Suspect]
     Active Substance: TRASTUZUMAB
     Indication: HER2 positive breast cancer
     Dosage: 1500 MILLIGRAM, Q3WK
     Route: 041
     Dates: start: 20171227
  3. TRASTUZUMAB [Suspect]
     Active Substance: TRASTUZUMAB
     Indication: Breast cancer
     Dosage: 500 MILLIGRAM, Q3WK
     Route: 041
     Dates: start: 20171227
  4. TRASTUZUMAB [Suspect]
     Active Substance: TRASTUZUMAB
     Dosage: 600 MILLIGRAM, Q3WK
     Route: 042
  5. TRASTUZUMAB [Suspect]
     Active Substance: TRASTUZUMAB
     Dosage: 840 MILLIGRAM, Q3WK
     Route: 041
     Dates: start: 20150420
  6. TRASTUZUMAB [Suspect]
     Active Substance: TRASTUZUMAB
     Dosage: 1800 MILLIGRAM, QWK
     Route: 041
     Dates: start: 20150420
  7. TRASTUZUMAB [Suspect]
     Active Substance: TRASTUZUMAB
     Dosage: 1500 MILLIGRAM, Q3WK
     Route: 041
     Dates: start: 20171227
  8. DOCETAXEL [Suspect]
     Active Substance: DOCETAXEL
     Indication: Breast cancer metastatic
     Dosage: 150 MILLIGRAM, Q3WK
     Route: 042
     Dates: start: 20150421, end: 20150421
  9. DOCETAXEL [Suspect]
     Active Substance: DOCETAXEL
     Indication: HER2 positive breast cancer
     Dosage: 120 MILLIGRAM, Q3WK
     Route: 042
     Dates: start: 20150512, end: 20150804
  10. DOCETAXEL [Suspect]
     Active Substance: DOCETAXEL
     Dosage: 120 MILLIGRAM, Q3WK
     Route: 042
     Dates: start: 20150804, end: 20150804
  11. DOCETAXEL [Suspect]
     Active Substance: DOCETAXEL
     Dosage: 300 MILLIGRAM, QWK
     Route: 042
     Dates: start: 20150421, end: 20150421
  12. DOCETAXEL [Suspect]
     Active Substance: DOCETAXEL
     Dosage: 240 MILLIGRAM, QWK
     Route: 042
     Dates: start: 20150512, end: 20150804
  13. DOCETAXEL [Suspect]
     Active Substance: DOCETAXEL
     Dosage: 150 MILLIGRAM, Q2WK
     Route: 042
     Dates: start: 20150421, end: 20150421
  14. DOCETAXEL [Suspect]
     Active Substance: DOCETAXEL
     Dosage: 240 MILLIGRAM, QWK
     Route: 042
     Dates: start: 20150512, end: 20150804
  15. DOCETAXEL [Suspect]
     Active Substance: DOCETAXEL
     Dosage: 360 MILLIGRAM, QWK
     Route: 042
     Dates: start: 20150512, end: 20150804
  16. PERTUZUMAB [Suspect]
     Active Substance: PERTUZUMAB
     Indication: Breast cancer metastatic
     Dosage: 420 MILLIGRAM, Q3WK
     Route: 042
     Dates: start: 20150420
  17. PERTUZUMAB [Suspect]
     Active Substance: PERTUZUMAB
     Indication: HER2 positive breast cancer
     Dosage: 840 MILLIGRAM, Q3WK
     Route: 042
     Dates: start: 20150420
  18. PERTUZUMAB [Suspect]
     Active Substance: PERTUZUMAB
     Dosage: 960 MILLIGRAM
     Route: 042
     Dates: start: 20150420
  19. PERTUZUMAB [Suspect]
     Active Substance: PERTUZUMAB
     Dosage: 1260 MILLIGRAM, QWK
     Route: 042
     Dates: start: 20150420
  20. PERTUZUMAB [Suspect]
     Active Substance: PERTUZUMAB
     Dosage: 1680 MILLIGRAM, QWK
     Route: 042
     Dates: start: 20150420
  21. PERTUZUMAB [Suspect]
     Active Substance: PERTUZUMAB
     Dosage: 2520 MILLIGRAM, QWK
     Route: 042
     Dates: start: 20150420
  22. XGEVA [Concomitant]
     Active Substance: DENOSUMAB
     Indication: Product used for unknown indication
     Dosage: 120 MILLIGRAM, QMO
     Route: 058
     Dates: start: 20150623, end: 20170508
  23. XGEVA [Concomitant]
     Active Substance: DENOSUMAB
     Dosage: 120 MG, 0.5 PER DAY
     Route: 048
     Dates: start: 20180115
  24. XGEVA [Concomitant]
     Active Substance: DENOSUMAB
     Dosage: 120 MILLIGRAM, Q12HR/BID
     Route: 048
  25. XGEVA [Concomitant]
     Active Substance: DENOSUMAB
     Dosage: 240 MILLIGRAM, QD
     Route: 048
     Dates: start: 20180115
  26. AMOXIL [Concomitant]
     Active Substance: AMOXICILLIN
     Indication: Lower respiratory tract infection
     Dosage: 500 MILLIGRAM, QD
     Route: 048
     Dates: start: 20171227, end: 20180102
  27. AMOXIL [Concomitant]
     Active Substance: AMOXICILLIN
     Indication: Chest pain
     Dosage: 625 MILLIGRAM, QD
     Route: 048
     Dates: start: 20180220, end: 20180225
  28. AMOXIL [Concomitant]
     Active Substance: AMOXICILLIN
     Dosage: 1875 MG, QD/EVERY 1 DAY (DOSE FORM: 245)
     Route: 048
     Dates: start: 20180225, end: 20180225
  29. AMOXICILLIN\CLAVULANATE POTASSIUM [Concomitant]
     Active Substance: AMOXICILLIN\CLAVULANATE POTASSIUM
     Indication: Influenza
     Dosage: 625 MILLIGRAM, QD
     Route: 048
     Dates: start: 20180220, end: 20180225
  30. AMOXICILLIN\CLAVULANATE POTASSIUM [Concomitant]
     Active Substance: AMOXICILLIN\CLAVULANATE POTASSIUM
     Dosage: 1875 MILLIGRAM, QD
     Route: 048
     Dates: start: 20180220, end: 20180225
  31. AMOXICILLIN\CLAVULANATE POTASSIUM [Concomitant]
     Active Substance: AMOXICILLIN\CLAVULANATE POTASSIUM
     Dosage: 1875 MILLIGRAM, QD
     Route: 048
     Dates: start: 20180225
  32. LANOLIN\LIGHT MINERAL OIL\PARAFFIN [Concomitant]
     Active Substance: LANOLIN\LIGHT MINERAL OIL\PARAFFIN
     Indication: Pruritus
     Dosage: UNK, 1 TABLESPOON
     Route: 061
     Dates: start: 20150515
  33. ENOXAPARIN [Concomitant]
     Active Substance: ENOXAPARIN
     Indication: Influenza
     Dosage: 40 MILLIGRAM
     Route: 058
     Dates: start: 20180219, end: 20180220
  34. HYDROCORTISONE [Concomitant]
     Active Substance: HYDROCORTISONE
     Indication: Eczema
     Dosage: 1 % CREAM (DOSE FORM:17)
     Route: 065
  35. HYDROCORTISONE [Concomitant]
     Active Substance: HYDROCORTISONE
     Dosage: 400 MILLIGRAM
     Route: 048
     Dates: start: 20161229
  36. IBUPROFEN [Concomitant]
     Active Substance: IBUPROFEN
     Indication: Spinal pain
     Dosage: 400 MILLIGRAM
     Route: 048
     Dates: start: 20161229
  37. IBUPROFEN [Concomitant]
     Active Substance: IBUPROFEN
     Dosage: 400 MILLIGRAM
     Route: 048
     Dates: start: 20161229
  38. POLYETHYLENE GLYCOL 3350\POTASSIUM CHLORIDE\SODIUM BICARBONATE\SODIUM [Concomitant]
     Active Substance: POLYETHYLENE GLYCOL 3350\POTASSIUM CHLORIDE\SODIUM BICARBONATE\SODIUM CHLORIDE
     Indication: Influenza
     Dosage: UNK, EVERY 0.5 DAY 1 SACHET
     Route: 048
     Dates: start: 20180219, end: 20180220
  39. SENNA [Concomitant]
     Active Substance: SENNA LEAF\SENNOSIDES\SENNOSIDES A AND B
     Indication: Influenza
     Dosage: 1 SACHET
     Route: 048
     Dates: start: 20180219, end: 20180220
  40. TAMIFLU [Concomitant]
     Active Substance: OSELTAMIVIR PHOSPHATE
     Indication: Influenza
     Dosage: 75 MILLIGRAM, QD
     Route: 048
     Dates: start: 20180219, end: 20180226
  41. TAMIFLU [Concomitant]
     Active Substance: OSELTAMIVIR PHOSPHATE
     Dosage: 150 MILLIGRAM, QD
     Route: 048
     Dates: start: 20180219, end: 20180226
  42. TAMIFLU [Concomitant]
     Active Substance: OSELTAMIVIR PHOSPHATE
     Dosage: 150 MILLIGRAM, QD
     Route: 048
     Dates: start: 20180226
  43. OMEPRAZOLE [Concomitant]
     Active Substance: OMEPRAZOLE
     Indication: Gastrooesophageal reflux disease
     Dosage: 20 MILLIGRAM
     Route: 048
     Dates: start: 20150713
  44. OMEPRAZOLE [Concomitant]
     Active Substance: OMEPRAZOLE
     Dosage: 20 MILLIGRAM, QD
     Route: 048
     Dates: start: 20150622, end: 20150713
  45. ALGINIC ACID\ALUMINUM HYDROXIDE\MAGNESIUM TRISILICATE [Concomitant]
     Active Substance: ALGINIC ACID\ALUMINUM HYDROXIDE\MAGNESIUM TRISILICATE
     Indication: Gastrooesophageal reflux disease
     Dosage: 20 MILLIGRAM, AS NECESSARY
     Route: 048
     Dates: start: 201505
  46. MEGACE [Concomitant]
     Active Substance: MEGESTROL ACETATE
     Indication: Menopausal symptoms
     Dosage: 80 MG, EVERY 2 DAYS
     Route: 048
     Dates: start: 20150601
  47. MEGACE [Concomitant]
     Active Substance: MEGESTROL ACETATE
     Indication: Night sweats
     Dosage: 160 MILLIGRAM, BID
     Route: 048
     Dates: start: 20150601
  48. MEGACE [Concomitant]
     Active Substance: MEGESTROL ACETATE
     Dosage: 300 MILLIGRAM
     Route: 048
     Dates: start: 20150601
  49. MEGACE [Concomitant]
     Active Substance: MEGESTROL ACETATE
     Dosage: 320 MILLIGRAM
     Route: 048
     Dates: start: 20150601
  50. ACETAMINOPHEN [Concomitant]
     Active Substance: ACETAMINOPHEN
     Indication: Arthralgia
     Dosage: 4 GRAM, QID
     Route: 048
     Dates: start: 20150427, end: 20150505
  51. ACETAMINOPHEN [Concomitant]
     Active Substance: ACETAMINOPHEN
     Indication: Influenza
     Dosage: 4 GRAM, QD
     Route: 048
     Dates: start: 20180218, end: 20180220
  52. ACETAMINOPHEN [Concomitant]
     Active Substance: ACETAMINOPHEN
     Dosage: 1 GRAM, QID
     Route: 048
     Dates: start: 20180218, end: 20180220
  53. ACETAMINOPHEN [Concomitant]
     Active Substance: ACETAMINOPHEN
     Dosage: 1 GRAM, QID
     Route: 048
     Dates: start: 20180220
  54. ACETAMINOPHEN [Concomitant]
     Active Substance: ACETAMINOPHEN
     Dosage: 16 GRAM
     Route: 048
     Dates: start: 20150427, end: 20150505
  55. PIPERACILLIN SODIUM\TAZOBACTAM SODIUM [Concomitant]
     Active Substance: PIPERACILLIN SODIUM\TAZOBACTAM SODIUM
     Indication: Spinal pain
     Dosage: 13.5 MILLIGRAM, QD
     Route: 048
     Dates: start: 20150429
  56. PIPERACILLIN SODIUM\TAZOBACTAM SODIUM [Concomitant]
     Active Substance: PIPERACILLIN SODIUM\TAZOBACTAM SODIUM
     Indication: Neutropenic sepsis
     Dosage: 4.5 MILLIGRAM, QD
     Route: 042
     Dates: start: 20150429, end: 20180220
  57. PIPERACILLIN SODIUM\TAZOBACTAM SODIUM [Concomitant]
     Active Substance: PIPERACILLIN SODIUM\TAZOBACTAM SODIUM
     Indication: Influenza
     Dosage: 13.5 MILLIGRAM, QD
     Route: 042
     Dates: start: 20180218, end: 20180220
  58. PIPERACILLIN SODIUM\TAZOBACTAM SODIUM [Concomitant]
     Active Substance: PIPERACILLIN SODIUM\TAZOBACTAM SODIUM
     Dosage: 13.4 MILLIGRAM, QD
     Route: 048
     Dates: start: 20150429
  59. PARAFFIN [Concomitant]
     Active Substance: PARAFFIN
     Indication: Epistaxis
     Dosage: TBSP (TABLESPOON)
     Route: 061
     Dates: start: 20160816
  60. PARAFFIN [Concomitant]
     Active Substance: PARAFFIN
     Dosage: UNK UNK, AS NECESSARY
     Route: 061
     Dates: start: 20160816
  61. PARAFFIN [Concomitant]
     Active Substance: PARAFFIN
     Dosage: UNK
     Route: 061
     Dates: start: 20181112
  62. NAPROXEN [Concomitant]
     Active Substance: NAPROXEN
     Indication: Influenza
     Dosage: 1000 MILLIGRAM, QD
     Route: 048
     Dates: start: 20180218, end: 20180220
  63. NAPROXEN [Concomitant]
     Active Substance: NAPROXEN
     Dosage: 250 MILLIGRAM
     Route: 048
     Dates: start: 2015, end: 20160314
  64. NAPROXEN [Concomitant]
     Active Substance: NAPROXEN
     Dosage: 500 MILLIGRAM
     Route: 048
     Dates: start: 20180218, end: 20180220
  65. PFIZER-BIONTECH COVID-19 VACCINE [Concomitant]
     Active Substance: TOZINAMERAN
     Dosage: 30 MICROGRAM
     Route: 030
     Dates: start: 20210422, end: 20210422
  66. PFIZER-BIONTECH COVID-19 VACCINE [Concomitant]
     Active Substance: TOZINAMERAN
     Dosage: 30 MICROGRAM
     Route: 030
     Dates: start: 20210204, end: 20210204
  67. METHYL SALICYLATE [Concomitant]
     Active Substance: METHYL SALICYLATE
     Indication: Product used for unknown indication
     Dosage: UNK UNK, AS NECESSARY
     Dates: start: 20161229
  68. RANITIDINE [Concomitant]
     Active Substance: RANITIDINE
     Indication: Gastrooesophageal reflux disease
     Dosage: 150 MILLIGRAM
     Route: 048
     Dates: start: 20150421
  69. RANITIDINE [Concomitant]
     Active Substance: RANITIDINE
     Dosage: 300 MILLIGRAM
     Route: 048
     Dates: start: 20150421
  70. AQUEOUS [EMULSIFYING WAX;PARAFFIN, LIQUID;WHITE SOFT PARAFFIN] [Concomitant]
     Dosage: UNK
     Route: 061
     Dates: start: 20181112
  71. IBUPROFEN [Concomitant]
     Active Substance: IBUPROFEN
     Indication: Arthralgia
     Dosage: 200 MG, BID/EVERY 12 HR (DOSE FORM: 245)
     Route: 048
     Dates: start: 20150420, end: 20150426
  72. IBUPROFEN [Concomitant]
     Active Substance: IBUPROFEN
     Dosage: 400 MILLIGRAM
     Route: 048
     Dates: start: 20161229
  73. IBUPROFEN [Concomitant]
     Active Substance: IBUPROFEN
     Dosage: 400 MG, QD/EVERY1 DAY
     Route: 048
     Dates: start: 20150420, end: 20150426
  74. ZOPICLONE [Concomitant]
     Active Substance: ZOPICLONE
     Dosage: 3.75 MILLIGRAM, AT NIGHT
     Route: 048
     Dates: start: 20151019
  75. ALTHAEA OFFICINALIS EXTRACT [Concomitant]
     Indication: Eczema
     Dosage: UNK
     Route: 061
     Dates: start: 20181112
  76. AVEENO [Concomitant]
     Active Substance: DIMETHICONE\HOMOSALATE\OCTINOXATE\OCTISALATE\TITANIUM DIOXIDE
     Indication: Eczema
     Dosage: UNK
     Route: 061
     Dates: start: 20190114
  77. MEGESTROL ACETATE [Concomitant]
     Active Substance: MEGESTROL ACETATE
     Indication: Menopausal symptoms
     Dosage: 80 MILLIGRAM
     Route: 048
     Dates: start: 20150601
  78. ALGINIC ACID [Concomitant]
     Active Substance: ALGINIC ACID
     Dosage: ADDITIONAL INFO: GAVISCON
  79. MINERAL OIL [Concomitant]
     Active Substance: MINERAL OIL
     Dosage: UNK
     Route: 061
     Dates: start: 20181112

REACTIONS (5)
  - Eczema [Recovered/Resolved]
  - Abdominal pain [Recovered/Resolved]
  - Influenza [Recovered/Resolved]
  - Nausea [Recovered/Resolved]
  - Off label use [Unknown]

NARRATIVE: CASE EVENT DATE: 20180218
